FAERS Safety Report 16083492 (Version 5)
Quarter: 2019Q2

REPORT INFORMATION
  Report Type: Spontaneous
  Country: IT (occurrence: IT)
  Receive Date: 20190318
  Receipt Date: 20190522
  Transmission Date: 20190711
  Serious: Yes (Hospitalization)
  Sender: FDA-Public Use
  Company Number: IT-009507513-1903ITA005713

PATIENT
  Age: 48 Year
  Sex: Male

DRUGS (2)
  1. TADALAFIL. [Interacting]
     Active Substance: TADALAFIL
     Dosage: UNK
  2. SIMVASTATIN. [Suspect]
     Active Substance: SIMVASTATIN
     Dosage: 20 MG/DIE
     Route: 048

REACTIONS (2)
  - Drug interaction [Recovering/Resolving]
  - Myopathy [Recovering/Resolving]
